FAERS Safety Report 4276740-4 (Version None)
Quarter: 2004Q1

REPORT INFORMATION
  Report Type: 
  Country: None (occurrence: None)
  Receive Date: 20040120
  Receipt Date: 20040120
  Transmission Date: 20041129
  Serious: No
  Sender: FDA-Public Use
  Company Number: None

PATIENT
  Age: 84 Year
  Sex: Male
  Weight: 84.8 kg

DRUGS (7)
  1. WARFARIN SODIUM [Suspect]
     Indication: ATRIAL FIBRILLATION
     Dosage: 7 MG QPM ORAL
     Route: 048
  2. METOPROLOL TAB [Concomitant]
  3. LORAZEPAM [Concomitant]
  4. FUROSEMIDE [Concomitant]
  5. BUSPIRONE HCL [Concomitant]
  6. HYDROCODONE/APAP [Concomitant]
  7. DILTIAZEM [Concomitant]

REACTIONS (1)
  - HAEMATOMA [None]
